FAERS Safety Report 22185142 (Version 2)
Quarter: 2023Q2

REPORT INFORMATION
  Report Type: Spontaneous
  Country: US (occurrence: US)
  Receive Date: 20230407
  Receipt Date: 20230425
  Transmission Date: 20230722
  Serious: No
  Sender: FDA-Public Use
  Company Number: US-HETERO-HET2023US00816

PATIENT
  Sex: Female

DRUGS (1)
  1. LEVOCETIRIZINE [Suspect]
     Active Substance: LEVOCETIRIZINE
     Indication: Hypersensitivity
     Dosage: 5 MG, ONE TABLET ONCE DAILY
     Route: 065
     Dates: start: 202303, end: 20230327

REACTIONS (1)
  - Abnormal dreams [Recovered/Resolved]

NARRATIVE: CASE EVENT DATE: 20230301
